FAERS Safety Report 9368943 (Version 2)
Quarter: 2013Q3

REPORT INFORMATION
  Report Type: Spontaneous
  Country: US (occurrence: None)
  Receive Date: 20130621
  Receipt Date: 20130710
  Transmission Date: 20140515
  Serious: Yes (Death, Hospitalization)
  Sender: FDA-Public Use
  Company Number: 2013-2465

PATIENT
  Age: 56 Year
  Sex: Female

DRUGS (11)
  1. SOMATULINE DEPOT [Suspect]
     Indication: ACROMEGALY
     Dosage: 90 MG (90 MG, 1 IN 28 D), SC
     Dates: start: 2009, end: 201304
  2. TRAMADOL [Suspect]
     Indication: PRODUCT USED FOR UNKNOWN INDICATION
     Route: 048
  3. SYNTHROID LEVOXYL (LEVOTHYROXINE SODIUM) [Concomitant]
  4. NEXIUM (ESOMEPRAZOLE MAGNESIUM) [Concomitant]
  5. AZITHROMYCIN (AZITHROMYCIN) [Concomitant]
  6. CELEBREX (CELECOXIB) [Concomitant]
  7. VICODIN (VICODIN) [Concomitant]
  8. GLUCOPHAGE (METFORMIN) [Concomitant]
  9. EC-NAPROSYN (NAPROXEN) [Concomitant]
  10. PHENERAGAN (PHENERGAN VC W/CODEINE) [Concomitant]
  11. SULFACETAMIDE SODIUM (SULFACETAMIDE SODIUM) [Concomitant]

REACTIONS (26)
  - Infection [None]
  - Acute respiratory failure [None]
  - Cardiac failure [None]
  - Pancreatitis necrotising [None]
  - Renal failure acute [None]
  - Acute myocardial infarction [None]
  - Cholelithiasis [None]
  - Pneumonia pseudomonal [None]
  - Cholecystitis [None]
  - Abdominal abscess [None]
  - Pulmonary oedema [None]
  - Enterococcus test positive [None]
  - Dehydration [None]
  - Hyperkalaemia [None]
  - Generalised oedema [None]
  - Pleural effusion [None]
  - Atelectasis [None]
  - Multi-organ failure [None]
  - Blood alkaline phosphatase increased [None]
  - Haemoglobin decreased [None]
  - Atrial fibrillation [None]
  - Atrial fibrillation [None]
  - Malnutrition [None]
  - Weight decreased [None]
  - Atrioventricular block complete [None]
  - Haematocrit decreased [None]
